FAERS Safety Report 24209537 (Version 1)
Quarter: 2024Q3

REPORT INFORMATION
  Report Type: Spontaneous
  Country: CN (occurrence: CN)
  Receive Date: 20240814
  Receipt Date: 20240814
  Transmission Date: 20241017
  Serious: Yes (Other)
  Sender: MYLAN
  Company Number: CN-MYLANLABS-2024M1074939

PATIENT
  Sex: Female

DRUGS (1)
  1. FONDAPARINUX [Suspect]
     Active Substance: FONDAPARINUX
     Indication: Hypercoagulation
     Dosage: UNK
     Route: 065

REACTIONS (8)
  - Adverse reaction [Unknown]
  - Ecchymosis [Unknown]
  - Vaginal haemorrhage [Unknown]
  - Rash [Unknown]
  - Transaminases increased [Unknown]
  - Thrombocytopenia [Unknown]
  - Maternal exposure during pregnancy [Unknown]
  - Gastrointestinal disorder [Unknown]
